FAERS Safety Report 7091681-5 (Version None)
Quarter: 2010Q4

REPORT INFORMATION
  Report Type: 
  Country: None (occurrence: None)
  Receive Date: 20101109
  Receipt Date: 20090805
  Transmission Date: 20110411
  Serious: No
  Sender: FDA-Public Use
  Company Number: US-KINGPHARMUSA00001-K200900967

PATIENT
  Sex: Female
  Weight: 63.492 kg

DRUGS (5)
  1. FLECTOR [Suspect]
     Indication: ARTHRALGIA
     Dosage: 1 PATCH, BID
     Route: 061
     Dates: start: 20090101, end: 20090803
  2. XANAX [Concomitant]
     Dosage: UNK
  3. PRISTIQ [Concomitant]
     Dosage: UNK
  4. DIOVAN [Concomitant]
     Indication: HYPERTENSION
     Dosage: UNK
  5. NEXIUM [Concomitant]

REACTIONS (8)
  - BALANCE DISORDER [None]
  - DYSGEUSIA [None]
  - GOUT [None]
  - HYPERACUSIS [None]
  - INCORRECT DOSE ADMINISTERED [None]
  - SKIN DISCOLOURATION [None]
  - TINNITUS [None]
  - VERTIGO [None]
